FAERS Safety Report 19416885 (Version 1)
Quarter: 2021Q2

REPORT INFORMATION
  Report Type: Spontaneous
  Country: US (occurrence: US)
  Receive Date: 20210614
  Receipt Date: 20210614
  Transmission Date: 20210717
  Serious: No
  Sender: FDA-Public Use
  Company Number: None

PATIENT
  Age: 43 Year
  Sex: Male

DRUGS (1)
  1. GLOBULIN, IMMUNE (GLOBULIN, IMMUNE (IV) (SORBITOL) 10% INJ) [Suspect]
     Active Substance: HUMAN IMMUNOGLOBULIN G
     Indication: NEUROPATHY PERIPHERAL
     Route: 042
     Dates: start: 20191215, end: 20210505

REACTIONS (3)
  - Urticaria [None]
  - Anaphylactic reaction [None]
  - Dyspnoea [None]

NARRATIVE: CASE EVENT DATE: 20210505
